FAERS Safety Report 8535105 (Version 4)
Quarter: 2012Q4

REPORT INFORMATION
  Report Type: Report from Study
  Country: BE (occurrence: BE)
  Receive Date: 20120427
  Receipt Date: 20121220
  Transmission Date: 20130627
  Serious: Yes (Hospitalization)
  Sender: FDA-Public Use
  Company Number: BE-ABBOTT-12P-013-0926734-00

PATIENT
  Age: 53 Year
  Sex: Female
  Weight: 62 kg

DRUGS (4)
  1. HUMIRA [Suspect]
     Indication: CROHN^S DISEASE
     Dosage: Baseline
     Route: 058
     Dates: start: 20081215, end: 20081215
  2. HUMIRA [Suspect]
     Route: 058
  3. HUMIRA [Suspect]
     Route: 058
  4. IMODIUM [Concomitant]
     Indication: DIARRHOEA
     Route: 048
     Dates: start: 2012

REACTIONS (1)
  - Crohn^s disease [Recovered/Resolved]
